FAERS Safety Report 18022466 (Version 1)
Quarter: 2020Q3

REPORT INFORMATION
  Report Type: Report from Study
  Country: CO (occurrence: CO)
  Receive Date: 20200714
  Receipt Date: 20200714
  Transmission Date: 20201103
  Serious: Yes (Other)
  Sender: FDA-Public Use
  Company Number: NVSC2018CO008161

PATIENT

DRUGS (1)
  1. EXJADE [Suspect]
     Active Substance: DEFERASIROX
     Indication: BLOOD DISORDER
     Dosage: 2 DF, QD (2 OF 500 MG, DAILY)
     Route: 065

REACTIONS (5)
  - Haemoglobin abnormal [Unknown]
  - Product use in unapproved indication [Unknown]
  - Limb injury [Unknown]
  - Fall [Unknown]
  - Varicose vein [Unknown]
